FAERS Safety Report 5682766-6 (Version None)
Quarter: 2008Q1

REPORT INFORMATION
  Report Type: 
  Country: None (occurrence: None)
  Receive Date: 20080327
  Receipt Date: 20080314
  Transmission Date: 20080703
  Serious: Yes (Hospitalization)
  Sender: FDA-Public Use
  Company Number: AT-ROCHE-549628

PATIENT
  Age: 48 Year
  Sex: Female
  Weight: 52 kg

DRUGS (8)
  1. CAPECITABINE [Suspect]
     Indication: BREAST CANCER
     Route: 048
     Dates: start: 20080220, end: 20080229
  2. EPIRUBICIN [Suspect]
     Indication: BREAST CANCER
     Route: 042
     Dates: start: 20080220, end: 20080229
  3. DOCETAXEL [Suspect]
     Indication: BREAST CANCER
     Route: 042
     Dates: start: 20080220, end: 20080229
  4. MYCOSTATIN [Concomitant]
  5. UNSPECIFIED DRUG [Concomitant]
     Dosage: REPORTED AS TRITTICO RETARD.
  6. MOVICOL [Concomitant]
  7. EFFORTIL [Concomitant]
     Dosage: REPORTED AS EFFORTIL COMP.
  8. NEXIUM [Concomitant]

REACTIONS (3)
  - ASTHENIA [None]
  - DEHYDRATION [None]
  - GENERAL PHYSICAL HEALTH DETERIORATION [None]
